FAERS Safety Report 10037850 (Version 1)
Quarter: 2014Q1

REPORT INFORMATION
  Report Type: Spontaneous
  Country: US (occurrence: None)
  Receive Date: 20140306
  Receipt Date: 20140306
  Transmission Date: 20141002
  Serious: Yes (Other)
  Sender: FDA-Public Use
  Company Number: 163-21880-13043618

PATIENT
  Age: 70 Year
  Sex: Male
  Weight: 88.45 kg

DRUGS (5)
  1. REVLIMID [Suspect]
     Indication: PLASMA CELL MYELOMA
     Dosage: 10 MG, 21 IN 21 D, PO
     Route: 048
     Dates: start: 201301, end: 2013
  2. HYDROCODONE APAP (PROCET /USA/) (UNKNOWN) [Concomitant]
  3. DEXAMETHASONE (DEXAMETHASONE) (UNKNOWN) [Concomitant]
  4. DIPHENOXYLATE ATROPINE (DIPHENOXYLATE W/ATROPINE SULFATE) (UNKNOWN) [Concomitant]
  5. ESCITALOPRAM (ESCITALOPRAM) (UNKNOWN) [Concomitant]

REACTIONS (1)
  - Pancytopenia [None]
